FAERS Safety Report 9147842 (Version 2)
Quarter: 2013Q2

REPORT INFORMATION
  Report Type: Report from Study
  Country: US (occurrence: US)
  Receive Date: 20130307
  Receipt Date: 20130515
  Transmission Date: 20140414
  Serious: Yes (Hospitalization)
  Sender: FDA-Public Use
  Company Number: US-TEVA-390308USA

PATIENT
  Age: 30 Year
  Sex: Female
  Weight: 59.42 kg

DRUGS (2)
  1. TREANDA [Suspect]
     Indication: HODGKIN^S DISEASE
     Dosage: DAY 1 AND 2 EVERY 21 DAYS
     Route: 042
     Dates: start: 20130131, end: 20130226
  2. BRENTUXIMAB VEDOTIN [Suspect]
     Indication: HODGKIN^S DISEASE
     Dosage: EVERY 21 DAYS
     Route: 042
     Dates: start: 20130131, end: 20130225

REACTIONS (2)
  - Pneumonia [Recovered/Resolved]
  - Anaemia [Unknown]
